FAERS Safety Report 7117929-6 (Version None)
Quarter: 2010Q4

REPORT INFORMATION
  Report Type: 
  Country: None (occurrence: None)
  Receive Date: 20101118
  Receipt Date: 20101118
  Transmission Date: 20110411
  Serious: Yes (Life-Threatening)
  Sender: FDA-Public Use
  Company Number: None

PATIENT
  Age: 15 Year
  Sex: Male
  Weight: 40.8237 kg

DRUGS (1)
  1. VYVANSE [Suspect]
     Indication: ATTENTION DEFICIT/HYPERACTIVITY DISORDER
     Dosage: 50 MG 1 DAILY PO
     Route: 048
     Dates: start: 20100815, end: 20101115

REACTIONS (5)
  - AGITATION [None]
  - BACK PAIN [None]
  - CHEST PAIN [None]
  - ORAL PAIN [None]
  - PAIN IN JAW [None]
